FAERS Safety Report 8050211-1 (Version None)
Quarter: 2012Q1

REPORT INFORMATION
  Report Type: 
  Country: None (occurrence: None)
  Receive Date: 20120117
  Receipt Date: 20120111
  Transmission Date: 20120608
  Serious: Yes (Death)
  Sender: FDA-Public Use
  Company Number: CHPA2012US001198

PATIENT
  Sex: Male

DRUGS (1)
  1. GAS-X CHEWABLE TABLETS CHERRY CREME [Suspect]
     Dosage: UNK, UNK
     Route: 048
     Dates: end: 20110101

REACTIONS (1)
  - DEATH [None]
